FAERS Safety Report 20693946 (Version 6)
Quarter: 2022Q4

REPORT INFORMATION
  Report Type: Report from Study
  Country: US (occurrence: US)
  Receive Date: 20220411
  Receipt Date: 20221003
  Transmission Date: 20230113
  Serious: Yes (Hospitalization, Other)
  Sender: FDA-Public Use
  Company Number: US-BoehringerIngelheim-2022-BI-156219

PATIENT
  Sex: Female

DRUGS (1)
  1. OFEV [Suspect]
     Active Substance: NINTEDANIB
     Indication: Idiopathic pulmonary fibrosis
     Route: 048
     Dates: start: 20220205, end: 20220913

REACTIONS (12)
  - Blood pressure increased [Recovered/Resolved]
  - Diarrhoea [Recovered/Resolved]
  - Weight decreased [Unknown]
  - Pneumothorax [Recovered/Resolved]
  - Post procedural complication [Unknown]
  - Nausea [Unknown]
  - Vomiting [Unknown]
  - Hernia [Recovered/Resolved]
  - Dyspepsia [Recovered/Resolved]
  - Impaired gastric emptying [Recovered/Resolved]
  - Diarrhoea [Recovered/Resolved]
  - Oesophagitis [Unknown]

NARRATIVE: CASE EVENT DATE: 20220101
